FAERS Safety Report 18276796 (Version 1)
Quarter: 2020Q3

REPORT INFORMATION
  Report Type: Spontaneous
  Country: NP (occurrence: NP)
  Receive Date: 20200917
  Receipt Date: 20200917
  Transmission Date: 20201103
  Serious: Yes (Death)
  Sender: FDA-Public Use
  Company Number: NVSC2020NP253424

PATIENT
  Sex: Male

DRUGS (1)
  1. GLIVEC [Suspect]
     Active Substance: IMATINIB MESYLATE
     Indication: CHRONIC MYELOID LEUKAEMIA
     Dosage: 400 MG 4 X 100MG TABLETS)
     Route: 065

REACTIONS (4)
  - Haemoglobin decreased [Fatal]
  - Leukopenia [Fatal]
  - Thrombocytopenia [Fatal]
  - Dyspnoea [Fatal]
